FAERS Safety Report 5327964-6 (Version None)
Quarter: 2007Q2

REPORT INFORMATION
  Report Type: 
  Country: None (occurrence: None)
  Receive Date: 20070517
  Receipt Date: 20070507
  Transmission Date: 20071010
  Serious: Yes (Hospitalization, Other)
  Sender: FDA-Public Use
  Company Number: TR-ABBOTT-07P-161-0364475-00

PATIENT
  Age: 70 Year
  Sex: Female
  Weight: 73 kg

DRUGS (3)
  1. HUMIRA [Suspect]
     Indication: RHEUMATOID ARTHRITIS
     Route: 058
     Dates: start: 20050517, end: 20070215
  2. METHOTREXATE [Concomitant]
     Indication: RHEUMATOID ARTHRITIS
     Route: 048
  3. PREDNISOLONE [Concomitant]
     Indication: RHEUMATOID ARTHRITIS
     Route: 048

REACTIONS (5)
  - COLON CANCER [None]
  - COLONIC OBSTRUCTION [None]
  - LYMPHOID TISSUE HYPERPLASIA [None]
  - METASTASES TO LIVER [None]
  - METASTASES TO LYMPH NODES [None]
